FAERS Safety Report 19661397 (Version 5)
Quarter: 2022Q1

REPORT INFORMATION
  Report Type: Spontaneous
  Country: US (occurrence: US)
  Receive Date: 20210805
  Receipt Date: 20220311
  Transmission Date: 20220424
  Serious: Yes (Hospitalization, Other)
  Sender: FDA-Public Use
  Company Number: US-BRAINTREE LABORATORIES, INC.-2021BTE00636

PATIENT
  Sex: Male
  Weight: 74.843 kg

DRUGS (9)
  1. SUPREP BOWEL PREP [Suspect]
     Active Substance: MAGNESIUM SULFATE\POTASSIUM SULFATE\SODIUM SULFATE
     Indication: Lithotripsy
     Dosage: 2 X 6 OZ. BOTTLE, 1X
     Route: 048
  2. DAILY ADVANTAGE MULTIVTAMIN [Concomitant]
     Dosage: 1 TABLETS, 1X/DAY
     Route: 048
  3. CARBOXYMETHYLCELLULOSE NA (SODIUM) [Concomitant]
     Dosage: 1 DROP, 4X/DAY
     Route: 047
  4. DIPHENHYDRAMINE [Concomitant]
     Active Substance: DIPHENHYDRAMINE
     Dosage: 25 MG, 4X/DAY AS NEEDED
     Route: 048
  5. MULTIVIT OPTH AREDS2 / LUTE / ZEAX (EYE VITAMIN) [Concomitant]
     Dosage: 1 CAPSULES, 2X/DAY WITH FOOD
     Route: 048
  6. ONDANSETRON [Concomitant]
     Active Substance: ONDANSETRON
     Dosage: 8 MG, 3X/DAY AS NEEDED
     Route: 048
  7. ACETYLCARNITINE [Concomitant]
     Active Substance: ACETYLCARNITINE
     Dosage: 500 MG, 1X/DAY
     Route: 048
  8. ASCORBIC ACID [Concomitant]
     Active Substance: ASCORBIC ACID
     Dosage: 500 MG, 1X/DAY
     Route: 048
  9. BROMELAINS [Concomitant]
     Active Substance: BROMELAINS
     Dosage: 1 TABLETS, 1X/DAY
     Route: 048

REACTIONS (23)
  - Weight decreased [Recovering/Resolving]
  - Memory impairment [Not Recovered/Not Resolved]
  - Blindness transient [Not Recovered/Not Resolved]
  - Ureterolithiasis [Recovered/Resolved]
  - Acute kidney injury [Recovered/Resolved]
  - Taste disorder [Not Recovered/Not Resolved]
  - Parosmia [Not Recovered/Not Resolved]
  - Ageusia [Not Recovered/Not Resolved]
  - Decreased appetite [Not Recovered/Not Resolved]
  - Rash [Unknown]
  - Urticaria [Unknown]
  - Pruritus [Not Recovered/Not Resolved]
  - Peripheral swelling [Unknown]
  - Dyspepsia [Unknown]
  - Frequent bowel movements [Not Recovered/Not Resolved]
  - Malaise [Unknown]
  - Off label use [Recovered/Resolved]
  - Joint swelling [Not Recovered/Not Resolved]
  - Hypertrophy of tongue papillae [Unknown]
  - Urinary retention postoperative [Unknown]
  - Hypotension [Unknown]
  - Prostatic disorder [Not Recovered/Not Resolved]
  - Bladder spasm [Not Recovered/Not Resolved]

NARRATIVE: CASE EVENT DATE: 20190101
